FAERS Safety Report 19821485 (Version 2)
Quarter: 2021Q3

REPORT INFORMATION
  Report Type: Report from Study
  Country: CN (occurrence: CN)
  Receive Date: 20210913
  Receipt Date: 20210916
  Transmission Date: 20211014
  Serious: Yes (Hospitalization)
  Sender: FDA-Public Use
  Company Number: CN-PFIZER INC-202101156276

PATIENT
  Age: 41 Year
  Sex: Female

DRUGS (7)
  1. PACLITAXEL. [Suspect]
     Active Substance: PACLITAXEL
     Indication: TRIPLE NEGATIVE BREAST CANCER
     Dosage: 80 MG/M2, EVERY WEEK FOR 12 WEEKS
     Route: 042
     Dates: start: 20201029
  2. PEGFILGRASTIM [Concomitant]
     Active Substance: PEGFILGRASTIM
     Indication: TRIPLE NEGATIVE BREAST CANCER
     Dosage: 6 MG, CYCLE 4 VISIT 1 (NUMBER OF INJECTION 2), EVERY 2 WEEKS
     Route: 058
     Dates: start: 20210212, end: 20210212
  3. PEGFILGRASTIM [Concomitant]
     Active Substance: PEGFILGRASTIM
     Dosage: 6 MG, CYCLE 4 VISIT 2 (NUMBER OF INJECTION 2), EVERY 2 WEEKS
     Route: 058
     Dates: start: 20210226, end: 20210226
  4. PEGFILGRASTIM [Concomitant]
     Active Substance: PEGFILGRASTIM
     Dosage: 6 MG, CYCLE 5 VISIT 2 (NUMBER OF INJECTION 2), EVERY 2 WEEKS
     Route: 058
     Dates: start: 20210326, end: 20210326
  5. PEGFILGRASTIM [Concomitant]
     Active Substance: PEGFILGRASTIM
     Dosage: 6 MG, CYCLE 5 VISIT 1 (NUMBER OF INJECTION 2), EVERY 2 WEEKS
     Route: 058
     Dates: start: 20210312, end: 20210312
  6. CYCLOPHOSPHAMIDE. [Suspect]
     Active Substance: CYCLOPHOSPHAMIDE
     Indication: TRIPLE NEGATIVE BREAST CANCER
     Dosage: 600 MG/M2, EVERY 2 WEEKS FOR 4 DOSES
     Route: 042
     Dates: start: 20210210
  7. EPIRUBICIN HCL [Suspect]
     Active Substance: EPIRUBICIN HYDROCHLORIDE
     Indication: TRIPLE NEGATIVE BREAST CANCER
     Dosage: 90 MG/M2 MOST RECENT DOSE PRIOR TO SERIOUS ADVERSE EVENT ONSET EVERY 2 WEEKS FOR A TOTAL OF 4 DOSES
     Route: 042
     Dates: start: 20210210

REACTIONS (1)
  - Pulmonary sarcoidosis [Not Recovered/Not Resolved]

NARRATIVE: CASE EVENT DATE: 20210816
